FAERS Safety Report 20801464 (Version 1)
Quarter: 2022Q2

REPORT INFORMATION
  Report Type: Other
  Country: ES (occurrence: ES)
  Receive Date: 20220509
  Receipt Date: 20220509
  Transmission Date: 20220721
  Serious: Yes (Hospitalization)
  Sender: FDA-Public Use
  Company Number: ES-BoehringerIngelheim-2022-BI-167899

PATIENT
  Age: 43 Year
  Sex: Male
  Weight: 83 kg

DRUGS (14)
  1. ALTEPLASE [Suspect]
     Active Substance: ALTEPLASE
     Indication: Pulmonary embolism
     Route: 065
  2. ALTEPLASE [Suspect]
     Active Substance: ALTEPLASE
     Indication: Cardiac ventricular thrombosis
  3. HEPARIN [Suspect]
     Active Substance: HEPARIN SODIUM
     Indication: Product used for unknown indication
     Route: 065
  4. MEROPENEM [Concomitant]
     Active Substance: MEROPENEM
     Indication: Product used for unknown indication
     Dates: start: 202003
  5. AMPICILLIN [Concomitant]
     Active Substance: AMPICILLIN
     Indication: Product used for unknown indication
     Dates: start: 202003
  6. ENOXAPARIN [Concomitant]
     Active Substance: ENOXAPARIN
     Indication: Product used for unknown indication
     Dates: start: 20200411
  7. LOPINAVIR\RITONAVIR [Concomitant]
     Active Substance: LOPINAVIR\RITONAVIR
     Indication: Product used for unknown indication
     Dosage: 80 MG/20 MG
     Dates: start: 202003
  8. CHLOROQUINE [Concomitant]
     Active Substance: CHLOROQUINE
     Indication: Product used for unknown indication
     Dates: start: 202003
  9. TOCILIZUMAB [Concomitant]
     Active Substance: TOCILIZUMAB
     Indication: Product used for unknown indication
     Route: 065
     Dates: start: 202003
  10. NOREPINEPHRINE\NOREPINEPHRINE BITARTRATE [Concomitant]
     Active Substance: NOREPINEPHRINE\NOREPINEPHRINE BITARTRATE
     Indication: Product used for unknown indication
  11. EPINEPHRINE [Concomitant]
     Active Substance: EPINEPHRINE
     Indication: Product used for unknown indication
  12. AZITHROMYCIN [Concomitant]
     Active Substance: AZITHROMYCIN
     Indication: Product used for unknown indication
     Dates: start: 202003
  13. METHYLPREDNISOLONE [Concomitant]
     Active Substance: METHYLPREDNISOLONE
     Indication: Product used for unknown indication
     Dates: start: 202003
  14. REMDESIVIR [Concomitant]
     Active Substance: REMDESIVIR
     Indication: Product used for unknown indication
     Dates: start: 202003

REACTIONS (2)
  - Post procedural haemorrhage [Recovered/Resolved]
  - Pulmonary function test decreased [Recovering/Resolving]
